FAERS Safety Report 12945571 (Version 1)
Quarter: 2016Q4

REPORT INFORMATION
  Report Type: Spontaneous
  Country: FR (occurrence: FR)
  Receive Date: 20161115
  Receipt Date: 20161115
  Transmission Date: 20170207
  Serious: Yes (Hospitalization)
  Sender: FDA-Public Use
  Company Number: FR-PFIZER INC-2016527911

PATIENT
  Age: 69 Year
  Sex: Male

DRUGS (2)
  1. BRILIQUE [Suspect]
     Active Substance: TICAGRELOR
     Indication: PROPHYLAXIS
     Dosage: 90 MG, 2X/DAY
     Route: 048
     Dates: start: 20161025, end: 20161027
  2. DISCOTRINE [Suspect]
     Active Substance: NITROGLYCERIN
     Dosage: 1 DF, DAILY, 5 MG/24 H
     Route: 062
     Dates: start: 20161026

REACTIONS (2)
  - Erythema [Recovering/Resolving]
  - Rash maculo-papular [Recovering/Resolving]

NARRATIVE: CASE EVENT DATE: 20161027
